FAERS Safety Report 4608918-1 (Version None)
Quarter: 2005Q1

REPORT INFORMATION
  Report Type: 
  Country: None (occurrence: None)
  Receive Date: 20050309
  Receipt Date: 20050224
  Transmission Date: 20050727
  Serious: Yes (Hospitalization)
  Sender: FDA-Public Use
  Company Number: 2004231950FR

PATIENT
  Age: 85 Year
  Sex: Female

DRUGS (14)
  1. PREDNISONE [Suspect]
     Indication: ILL-DEFINED DISORDER
     Dosage: 20 MG (2 IN 1 D), ORAL
     Route: 048
     Dates: start: 20040731, end: 20040806
  2. PANTOPRAZOLE SODIUM [Suspect]
     Indication: ILL-DEFINED DISORDER
     Dosage: 20 MG ( 1 IN 1 D), ORAL
     Route: 048
     Dates: start: 20040731, end: 20040802
  3. URAPIDIL (URAPIDIEL) [Suspect]
     Indication: ILL-DEFINED DISORDER
     Dosage: 30 MG (2 IN 1 D), ORAL
     Route: 048
     Dates: start: 20040729, end: 20040802
  4. LOMOTIL [Suspect]
     Indication: ILL-DEFINED DISORDER
     Dosage: UNKNOWN DF (AS NECESSARY), ORAL
     Route: 048
     Dates: start: 20040729, end: 20040802
  5. TETRAZEPAM (TETRAZEPAM) [Suspect]
     Indication: ILL-DEFINED DISORDER
     Dosage: 50 MG (1 IN 1 D), ORAL
     Route: 048
     Dates: start: 20040731, end: 20040802
  6. BLOPRESS PLUS (CANDESARTAN CILEXETIL, HYDROCHLOROTHIAZIDE0 [Suspect]
     Indication: ESSENTIAL HYPERTENSION
     Dosage: 8 MG (1 IN 1 D), ORAL
     Route: 048
     Dates: start: 20040729, end: 20040802
  7. CANDESARAN CILEXETIL (CANDESARTAN CILEXETIL) [Suspect]
     Indication: ESSENTIAL HYPERTENSION
     Dosage: (AS NECESSARY) , ORAL
     Route: 048
     Dates: end: 20040729
  8. AMLODIPINE BESYLATE [Suspect]
     Indication: ESSENTIAL HYPERTENSION
     Dosage: 5 MG (1 IN 1 D), ORAL
     Route: 048
     Dates: start: 20040731, end: 20040802
  9. CLARITHROMYCIN [Suspect]
     Indication: ILL-DEFINED DISORDER
     Dosage: 1 DF ( 1 IN 1 D), ORAL
     Route: 048
     Dates: start: 20040731, end: 20040802
  10. ACETAMINOPHEN [Suspect]
     Indication: ILL-DEFINED DISORDER
     Dates: start: 20040731, end: 20040802
  11. FLECAINIDE ACETATE [Suspect]
     Indication: ARRHYTHMIA
     Dosage: 50 MG (2 IN 1 D), ORAL
     Route: 048
     Dates: start: 20040709
  12. SOTALOL HCL [Suspect]
     Indication: ILL-DEFINED DISORDER
     Dosage: 0.5 DF , ORAL
     Route: 048
     Dates: start: 20040709
  13. LEVOTHYROXINE SODIUM [Suspect]
     Indication: HYPERTHYROIDISM
     Dosage: 75 MCG (4 IN 1 D), ORAL
     Route: 048
  14. CALCITONIN SALMON [Suspect]
     Indication: ILL-DEFINED DISORDER
     Dosage: 0.5 MG ( 1 IN 1 D)
     Dates: start: 20040727, end: 20040802

REACTIONS (2)
  - DEPRESSED LEVEL OF CONSCIOUSNESS [None]
  - HYPONATRAEMIA [None]
